FAERS Safety Report 8248687 (Version 2)
Quarter: 2013Q2

REPORT INFORMATION
  Report Type: Spontaneous
  Country: US (occurrence: US)
  Receive Date: 20111117
  Receipt Date: 20130430
  Transmission Date: 20140414
  Serious: No
  Sender: FDA-Public Use
  Company Number: US-ELI_LILLY_AND_COMPANY-US201108008757

PATIENT
  Sex: Female

DRUGS (8)
  1. ZYPREXA [Suspect]
     Indication: BIPOLAR DISORDER
     Dosage: 23.75 MG, QD
  2. ZYPREXA [Suspect]
     Dosage: UNK, QD
  3. ZYPREXA [Suspect]
     Dosage: UNK
     Route: 065
  4. ZYPREXA [Suspect]
     Route: 065
  5. ZYPREXA [Suspect]
     Dosage: 2.5 MG, UNK
  6. ZYPREXA [Suspect]
     Dosage: 2.5 MG, OTHER
  7. ZYPREXA [Suspect]
     Dosage: 2.5 MG, OTHER
  8. RISPERDAL [Concomitant]
     Dosage: UNK, UNKNOWN

REACTIONS (14)
  - Menorrhagia [Unknown]
  - Nervousness [Unknown]
  - Screaming [Unknown]
  - Abnormal behaviour [Unknown]
  - Depressed mood [Unknown]
  - Communication disorder [Unknown]
  - Self injurious behaviour [Unknown]
  - Adverse drug reaction [Unknown]
  - Aggression [Unknown]
  - Weight increased [Unknown]
  - Prescribed overdose [Unknown]
  - Drug ineffective [Unknown]
  - Intentional drug misuse [Unknown]
  - Off label use [Unknown]
